FAERS Safety Report 7086718-3 (Version None)
Quarter: 2010Q4

REPORT INFORMATION
  Report Type: 
  Country: None (occurrence: None)
  Receive Date: 20101105
  Receipt Date: 20101026
  Transmission Date: 20110411
  Serious: Yes (Life-Threatening, Hospitalization, Other)
  Sender: FDA-Public Use
  Company Number: ES-ROCHE-737572

PATIENT
  Age: 52 Year
  Sex: Female

DRUGS (4)
  1. HERCEPTIN [Suspect]
     Dosage: FORM: INFUSION
     Route: 042
     Dates: start: 20070101, end: 20070101
  2. XELODA [Suspect]
     Route: 048
     Dates: start: 20090101, end: 20090101
  3. XELODA [Suspect]
     Dosage: DOSE REDUCED
     Route: 048
  4. LAPATINIB [Suspect]
     Route: 065
     Dates: start: 20090101, end: 20090101

REACTIONS (3)
  - ANAPHYLACTIC SHOCK [None]
  - CARDIO-RESPIRATORY ARREST [None]
  - TOXIC SKIN ERUPTION [None]
